FAERS Safety Report 19399303 (Version 2)
Quarter: 2021Q3

REPORT INFORMATION
  Report Type: Spontaneous
  Country: NL (occurrence: NL)
  Receive Date: 20210610
  Receipt Date: 20210706
  Transmission Date: 20211014
  Serious: Yes (Hospitalization, Other)
  Sender: FDA-Public Use
  Company Number: NL-ACCORD-227153

PATIENT
  Age: 62 Year
  Sex: Male

DRUGS (13)
  1. SORAFENIB/SORAFENIB TOSILATE [Interacting]
     Active Substance: SORAFENIB TOSYLATE
     Indication: METASTASES TO LUNG
     Dosage: 200 MG, 400 MG PER DAY (IN THE MORNING) FILM?COATED TABLET
     Dates: start: 201802, end: 201805
  2. LOSARTAN. [Concomitant]
     Active Substance: LOSARTAN
  3. TACROLIMUS. [Interacting]
     Active Substance: TACROLIMUS
     Indication: IMMUNOSUPPRESSION
     Dates: start: 201706
  4. TACROLIMUS. [Interacting]
     Active Substance: TACROLIMUS
     Indication: IMMUNOSUPPRESSION
     Dosage: INCREASED
     Dates: start: 201708
  5. METFORMIN [Concomitant]
     Active Substance: METFORMIN HYDROCHLORIDE
  6. LOPERAMIDE [Concomitant]
     Active Substance: LOPERAMIDE
  7. METOPROLOL. [Concomitant]
     Active Substance: METOPROLOL
  8. SORAFENIB [Interacting]
     Active Substance: SORAFENIB
     Indication: METASTASES TO LUNG
     Dates: start: 201802
  9. SORAFENIB [Interacting]
     Active Substance: SORAFENIB
     Indication: METASTASES TO LUNG
     Dosage: IN THE MORNING
     Dates: start: 201712
  10. TACROLIMUS. [Suspect]
     Active Substance: TACROLIMUS
     Indication: IMMUNOSUPPRESSION
     Dosage: 3 MG, QD
     Dates: start: 2015
  11. SORAFENIB [Interacting]
     Active Substance: SORAFENIB
     Indication: METASTASES TO LUNG
     Dosage: IN THE EVENING
     Dates: start: 201712
  12. SORAFENIB [Interacting]
     Active Substance: SORAFENIB
     Indication: METASTASES TO LUNG
     Dates: start: 201706
  13. SORAFENIB [Interacting]
     Active Substance: SORAFENIB
     Indication: DISEASE RECURRENCE
     Dates: start: 201802, end: 201805

REACTIONS (3)
  - Drug level decreased [Unknown]
  - Drug interaction [Unknown]
  - Hepatotoxicity [Unknown]

NARRATIVE: CASE EVENT DATE: 2017
